FAERS Safety Report 5146448-1 (Version None)
Quarter: 2006Q4

REPORT INFORMATION
  Report Type: 
  Country: None (occurrence: None)
  Receive Date: 20061102
  Receipt Date: 20061019
  Transmission Date: 20070319
  Serious: Yes (Hospitalization, Disabling, Other)
  Sender: FDA-Public Use
  Company Number: 2004070397

PATIENT
  Age: 42 Year
  Sex: Male

DRUGS (7)
  1. NEURONTIN [Suspect]
     Indication: BIPOLAR DISORDER
     Dosage: 1200 MG (300 MG, 4 IN 1 D), ORAL
     Route: 048
     Dates: start: 19991002, end: 20040101
  2. CLONAZEPAM [Suspect]
     Indication: ANXIETY
     Dosage: 2 MG (0.5 MG, 4 IN 1 D), ORAL
     Route: 048
     Dates: start: 19960101
  3. CLONAZEPAM [Suspect]
     Indication: DEPRESSION
     Dosage: 2 MG (0.5 MG, 4 IN 1 D), ORAL
     Route: 048
     Dates: start: 19960101
  4. CLONAZEPAM [Suspect]
     Indication: ILL-DEFINED DISORDER
     Dosage: 2 MG (0.5 MG, 4 IN 1 D), ORAL
     Route: 048
     Dates: start: 19960101
  5. CLONAZEPAM [Suspect]
     Indication: OBSESSIVE-COMPULSIVE DISORDER
     Dosage: 2 MG (0.5 MG, 4 IN 1 D), ORAL
     Route: 048
     Dates: start: 19960101
  6. PROZAC [Concomitant]
  7. ESKALITH [Concomitant]

REACTIONS (18)
  - AGGRESSION [None]
  - AGITATION [None]
  - ALCOHOLISM [None]
  - BIPOLAR DISORDER [None]
  - CONDITION AGGRAVATED [None]
  - DEFORMITY [None]
  - DEPRESSION [None]
  - DRUG DOSE OMISSION [None]
  - DRUG INEFFECTIVE [None]
  - DRUG LEVEL DECREASED [None]
  - DRUG TOLERANCE [None]
  - ILL-DEFINED DISORDER [None]
  - INJURY [None]
  - INTENTIONAL OVERDOSE [None]
  - OBSESSIVE-COMPULSIVE DISORDER [None]
  - PAIN [None]
  - STRESS AT WORK [None]
  - SUICIDE ATTEMPT [None]
